FAERS Safety Report 24038799 (Version 1)
Quarter: 2024Q3

REPORT INFORMATION
  Report Type: Spontaneous
  Country: IN (occurrence: IN)
  Receive Date: 20240702
  Receipt Date: 20240702
  Transmission Date: 20241017
  Serious: Yes (Other)
  Sender: ROCHE
  Company Number: IN-002147023-NVSC2024IN129184

PATIENT
  Age: 68 Year
  Sex: Male

DRUGS (1)
  1. RANIBIZUMAB [Suspect]
     Active Substance: RANIBIZUMAB
     Indication: Diabetic retinal oedema
     Dosage: UNK
     Route: 050
     Dates: start: 20240419

REACTIONS (4)
  - Cataract cortical [Unknown]
  - Cataract nuclear [Unknown]
  - Cataract subcapsular [Unknown]
  - Vision blurred [Unknown]
